FAERS Safety Report 21240918 (Version 1)
Quarter: 2022Q3

REPORT INFORMATION
  Report Type: Spontaneous
  Country: US (occurrence: None)
  Receive Date: 20220823
  Receipt Date: 20220823
  Transmission Date: 20221026
  Serious: No
  Sender: FDA-Public Use
  Company Number: US-ROCHE-3165092

PATIENT
  Sex: Male
  Weight: 72.640 kg

DRUGS (3)
  1. OCREVUS [Suspect]
     Active Substance: OCRELIZUMAB
     Indication: Primary progressive multiple sclerosis
     Dosage: YES
     Route: 042
     Dates: start: 201211
  2. TAMSULOSIN [Concomitant]
     Active Substance: TAMSULOSIN
     Route: 048
  3. BACLOFEN [Concomitant]
     Active Substance: BACLOFEN
     Indication: Bladder spasm
     Dosage: TWO 10MG TABLETS AT BEDTIME
     Route: 048

REACTIONS (4)
  - COVID-19 [Not Recovered/Not Resolved]
  - Urinary incontinence [Not Recovered/Not Resolved]
  - Bladder spasm [Not Recovered/Not Resolved]
  - Gait disturbance [Not Recovered/Not Resolved]

NARRATIVE: CASE EVENT DATE: 20160101
